FAERS Safety Report 6283234-3 (Version None)
Quarter: 2009Q3

REPORT INFORMATION
  Report Type: 
  Country: None (occurrence: None)
  Receive Date: 20090722
  Receipt Date: 20090709
  Transmission Date: 20100115
  Serious: Yes (Death, Hospitalization)
  Sender: FDA-Public Use
  Company Number: FABR-1000860

PATIENT
  Age: 78 Year
  Sex: Male
  Weight: 70 kg

DRUGS (3)
  1. FABRAZYME [Suspect]
     Indication: FABRY'S DISEASE
     Dosage: 70 MG, Q2W, INTRAVENOUS
     Route: 042
     Dates: start: 20030101, end: 20090706
  2. BENADRYL [Concomitant]
  3. ACETAMINOPHEN [Concomitant]

REACTIONS (4)
  - CARDIAC ARREST [None]
  - CEREBROVASCULAR ACCIDENT [None]
  - PNEUMONIA [None]
  - RENAL FAILURE ACUTE [None]
